FAERS Safety Report 10023715 (Version 1)
Quarter: 2014Q1

REPORT INFORMATION
  Report Type: Spontaneous
  Country: JP (occurrence: JP)
  Receive Date: 20140320
  Receipt Date: 20140320
  Transmission Date: 20141002
  Serious: No
  Sender: FDA-Public Use
  Company Number: JP-ELI_LILLY_AND_COMPANY-JP201403005361

PATIENT
  Age: 26 Year
  Sex: Male

DRUGS (3)
  1. ZYPREXA [Suspect]
     Indication: SCHIZOPHRENIA
     Dosage: UNK
     Route: 048
  2. ZYPREXA [Suspect]
     Dosage: UNK
     Route: 048
  3. ZYPREXA [Suspect]
     Dosage: UNK
     Route: 048

REACTIONS (1)
  - Eosinophil count increased [Unknown]
